FAERS Safety Report 6927468-0 (Version None)
Quarter: 2010Q3

REPORT INFORMATION
  Report Type: 
  Country: None (occurrence: None)
  Receive Date: 20100812
  Receipt Date: 20100728
  Transmission Date: 20110219
  Serious: Yes (Death, Hospitalization)
  Sender: FDA-Public Use
  Company Number: APP201000626

PATIENT
  Age: 27 Year
  Sex: Female

DRUGS (23)
  1. HEPARIN SODIUM INJECTION [Suspect]
     Indication: DIALYSIS
     Dosage: 5000 UNITS IV FLUSH, INTRAVENOUS
     Route: 042
     Dates: start: 20070307, end: 20070307
  2. HEPARIN SODIUM [Suspect]
     Indication: DIALYSIS
     Dosage: 1000 UNITS IV BOLUS, INTRAVENOUS
     Route: 042
     Dates: start: 20070307, end: 20070307
  3. LIPITOR [Concomitant]
  4. PREDNISONE [Concomitant]
  5. HYDROCODONE BITARTRATE [Concomitant]
  6. DIGOXIN [Concomitant]
  7. ATENOLOL [Concomitant]
  8. FOLIC ACID [Concomitant]
  9. SENSIPAR [Concomitant]
  10. FUROSEMIDE [Concomitant]
  11. DIOVAN [Concomitant]
  12. HYDROXYCHLOROQUINE SULFATE [Concomitant]
  13. PREVACID [Concomitant]
  14. RENAGEL [Concomitant]
  15. DILTIAZEM [Concomitant]
  16. LEVAQUIN [Concomitant]
  17. DOCUSATE SODIUM (DOCUSATE SODIUM) [Concomitant]
  18. DIPHENHYDRAMINE HCL [Concomitant]
  19. METOCLOPRAMIDE [Concomitant]
  20. SUCRALFATE [Concomitant]
  21. HYDROMORPHONE HCL [Concomitant]
  22. AMLODIPINE [Concomitant]
  23. PHOSLO [Concomitant]

REACTIONS (4)
  - HAEMORRHAGE [None]
  - OEDEMA PERIPHERAL [None]
  - PROCEDURAL HYPOTENSION [None]
  - SIMILAR REACTION ON PREVIOUS EXPOSURE TO DRUG [None]
